FAERS Safety Report 6399397-5 (Version None)
Quarter: 2009Q4

REPORT INFORMATION
  Report Type: 
  Country: None (occurrence: None)
  Receive Date: 20091014
  Receipt Date: 20091002
  Transmission Date: 20100525
  Serious: Yes (Other)
  Sender: FDA-Public Use
  Company Number: NL-AMGEN-US368416

PATIENT
  Age: 35 Year
  Sex: Female

DRUGS (5)
  1. ENBREL [Suspect]
     Indication: JUVENILE ARTHRITIS
     Route: 058
     Dates: start: 20000101, end: 20030101
  2. NSAID'S [Concomitant]
     Indication: JUVENILE ARTHRITIS
     Dosage: UNKNOWN, REQUIRED LESS DURING ENBREL THERAPY
     Route: 065
  3. METHYLPREDNISOLONE [Concomitant]
     Indication: JUVENILE ARTHRITIS
     Dosage: REGULARLY, THEN TAPERED AND DISCONTINUED
     Route: 065
  4. INSULIN ASPART [Concomitant]
  5. INSULIN GLARGINE [Concomitant]

REACTIONS (2)
  - DRUG EFFECT DECREASED [None]
  - TYPE 1 DIABETES MELLITUS [None]
